FAERS Safety Report 5019451-X (Version None)
Quarter: 2006Q2

REPORT INFORMATION
  Report Type: 
  Country: None (occurrence: None)
  Receive Date: 20060531
  Receipt Date: 20060515
  Transmission Date: 20061013
  Serious: Yes (Hospitalization)
  Sender: FDA-Public Use
  Company Number: 2006P1000269

PATIENT
  Age: 54 Year
  Sex: Male
  Weight: 65 kg

DRUGS (5)
  1. RETEPLASE (RETEPLASE) [Suspect]
     Indication: ACUTE MYOCARDIAL INFARCTION
     Dosage: 5 IU 1X IVB ; 5 IU 1X IVB
     Route: 040
     Dates: start: 20060216, end: 20060216
  2. RETEPLASE (RETEPLASE) [Suspect]
     Indication: ACUTE MYOCARDIAL INFARCTION
     Dosage: 5 IU 1X IVB ; 5 IU 1X IVB
     Route: 040
     Dates: start: 20060216, end: 20060216
  3. REOPRO [Suspect]
     Indication: ACUTE MYOCARDIAL INFARCTION
     Dosage: 8.1 ML 1X IB ; QH IV
     Route: 042
     Dates: start: 20060216, end: 20060216
  4. REOPRO [Suspect]
     Indication: ACUTE MYOCARDIAL INFARCTION
     Dosage: 8.1 ML 1X IB ; QH IV
     Route: 042
     Dates: start: 20060216
  5. HEPARIN [Concomitant]

REACTIONS (4)
  - ACUTE MYOCARDIAL INFARCTION [None]
  - CORONARY ARTERY DISEASE [None]
  - MALLORY-WEISS SYNDROME [None]
  - UPPER GASTROINTESTINAL HAEMORRHAGE [None]
